FAERS Safety Report 5931880-6 (Version None)
Quarter: 2008Q4

REPORT INFORMATION
  Report Type: 
  Country: None (occurrence: None)
  Receive Date: 20081022
  Receipt Date: 20081006
  Transmission Date: 20090506
  Serious: Yes (Other)
  Sender: FDA-Public Use
  Company Number: ENC200800188

PATIENT
  Age: 67 Year
  Sex: Female

DRUGS (6)
  1. ARGATROBAN [Suspect]
     Indication: HEPARIN-INDUCED THROMBOCYTOPENIA
     Dosage: 40 MG, THREE TIMES A WEEK, INTRAVENOUS
     Route: 042
     Dates: start: 20070101, end: 20071101
  2. FUROSEMIDE [Concomitant]
  3. ASPIRIN [Concomitant]
  4. CANDESARTAN CILEXETIL [Concomitant]
  5. ACARBOSE [Concomitant]
  6. EPOETIN BETA (EPOETIN BETA) [Concomitant]

REACTIONS (2)
  - HYPERCHOLESTEROLAEMIA [None]
  - LOW DENSITY LIPOPROTEIN INCREASED [None]
